FAERS Safety Report 15751246 (Version 1)
Quarter: 2018Q4

REPORT INFORMATION
  Report Type: Spontaneous
  Country: US (occurrence: US)
  Receive Date: 20181206
  Receipt Date: 20181206
  Transmission Date: 20190205
  Serious: No
  Sender: FDA-Public Use
  Company Number: None

PATIENT
  Age: 9 Month
  Sex: Male
  Weight: 8.28 kg

DRUGS (2)
  1. INFANTS IBUPROFEN [Suspect]
     Active Substance: IBUPROFEN
     Indication: TEETHING
     Dosage: ?          QUANTITY:1.875 MILLIMETERS;?
     Route: 048
     Dates: start: 20181109, end: 20181113
  2. TYLENOL [Concomitant]
     Active Substance: ACETAMINOPHEN

REACTIONS (3)
  - Diarrhoea [None]
  - Viral infection [None]
  - Recalled product administered [None]

NARRATIVE: CASE EVENT DATE: 20181110
